FAERS Safety Report 25237570 (Version 1)
Quarter: 2025Q2

REPORT INFORMATION
  Report Type: Spontaneous
  Country: US (occurrence: US)
  Receive Date: 20250425
  Receipt Date: 20250425
  Transmission Date: 20250717
  Serious: Yes (Other)
  Sender: UNICHEM
  Company Number: US-UNICHEM LABORATORIES LIMITED-UNI-2025-US-001935

PATIENT

DRUGS (1)
  1. AMIODARONE [Suspect]
     Active Substance: AMIODARONE
     Indication: Ventricular tachycardia
     Route: 048

REACTIONS (7)
  - Hepatic cirrhosis [Unknown]
  - Portal hypertension [Recovered/Resolved]
  - Ascites [Recovered/Resolved]
  - Renal failure [Recovered/Resolved]
  - Drug-induced liver injury [Recovered/Resolved]
  - Acute hepatic failure [Recovered/Resolved]
  - Toxicity to various agents [Unknown]
